FAERS Safety Report 7056691-2 (Version None)
Quarter: 2010Q4

REPORT INFORMATION
  Report Type: 
  Country: None (occurrence: None)
  Receive Date: 20101019
  Receipt Date: 20101004
  Transmission Date: 20110411
  Serious: Yes (Other)
  Sender: FDA-Public Use
  Company Number: AUR-APL-2010-02505

PATIENT
  Age: 36 Year
  Sex: Female

DRUGS (1)
  1. ONDANSETRON [Suspect]
     Indication: HYPEREMESIS GRAVIDARUM
     Dosage: 4MG-UNL-ORAL
     Route: 048

REACTIONS (1)
  - EYE ROLLING [None]
